FAERS Safety Report 5569885-X (Version None)
Quarter: 2007Q4

REPORT INFORMATION
  Report Type: 
  Country: None (occurrence: None)
  Receive Date: 20071220
  Receipt Date: 20070430
  Transmission Date: 20080405
  Serious: No
  Sender: FDA-Public Use
  Company Number: US-ABBOTT-07P-163-0366648-00

PATIENT
  Age: 8 Year
  Sex: Male

DRUGS (2)
  1. OMNICEF [Suspect]
     Indication: DRUG USE FOR UNKNOWN INDICATION
     Dates: start: 20070409
  2. OMNICEF [Suspect]
     Dates: start: 20070401

REACTIONS (3)
  - DRY SKIN [None]
  - RASH [None]
  - SKIN EXFOLIATION [None]
